FAERS Safety Report 7508558-0 (Version None)
Quarter: 2011Q2

REPORT INFORMATION
  Report Type: 
  Country: None (occurrence: None)
  Receive Date: 20110527
  Receipt Date: 20110512
  Transmission Date: 20111010
  Serious: Yes (Other)
  Sender: FDA-Public Use
  Company Number: CA-JNJFOC-20100701839

PATIENT
  Sex: Female
  Weight: 73.6 kg

DRUGS (7)
  1. VENTOLIN [Concomitant]
     Indication: ASTHMA
  2. REMICADE [Suspect]
     Indication: CROHN'S DISEASE
     Route: 042
     Dates: start: 20110512
  3. REMICADE [Suspect]
     Route: 042
     Dates: start: 20110222
  4. REMICADE [Suspect]
     Dosage: INFUSION #18
     Route: 042
     Dates: start: 20100705
  5. REMICADE [Suspect]
     Dosage: INFUSION #1-17
     Route: 042
     Dates: start: 20071127
  6. ATIVAN [Concomitant]
     Indication: ANXIETY
  7. AMOXICILLIN [Suspect]
     Indication: PHARYNGITIS STREPTOCOCCAL
     Dates: start: 20100729, end: 20100804

REACTIONS (6)
  - DRUG EXPOSURE DURING PREGNANCY [None]
  - JOINT STIFFNESS [None]
  - URTICARIA [None]
  - PHARYNGITIS STREPTOCOCCAL [None]
  - ARTHRALGIA [None]
  - ASTHMA [None]
